FAERS Safety Report 10701831 (Version 5)
Quarter: 2015Q4

REPORT INFORMATION
  Report Type: Spontaneous
  Country: US (occurrence: US)
  Receive Date: 20150109
  Receipt Date: 20151005
  Transmission Date: 20160304
  Serious: No
  Sender: FDA-Public Use
  Company Number: US-GLAXOSMITHKLINE-US2014GSK046351

PATIENT
  Age: 74 Year
  Sex: Male

DRUGS (16)
  1. ATORVASTATIN [Concomitant]
     Active Substance: ATORVASTATIN
  2. SINGULAIR [Concomitant]
     Active Substance: MONTELUKAST SODIUM
  3. ADVAIR HFA [Suspect]
     Active Substance: FLUTICASONE PROPIONATE\SALMETEROL XINAFOATE
     Indication: ASTHMA
     Dosage: 2 PUFF(S), BID
     Route: 055
  4. ADVAIR HFA [Suspect]
     Active Substance: FLUTICASONE PROPIONATE\SALMETEROL XINAFOATE
     Dosage: UNK
  5. MELOXICAM. [Concomitant]
     Active Substance: MELOXICAM
  6. ADVAIR DISKUS [Suspect]
     Active Substance: FLUTICASONE PROPIONATE\SALMETEROL XINAFOATE
     Indication: ASTHMA
     Dosage: 1 PUFF(S), BID
     Route: 055
     Dates: start: 200210, end: 20141002
  7. PANTOPRAZOLE [Concomitant]
     Active Substance: PANTOPRAZOLE SODIUM
  8. ADVAIR DISKUS [Suspect]
     Active Substance: FLUTICASONE PROPIONATE\SALMETEROL XINAFOATE
     Dosage: 1 PUFF(S), BID
     Route: 055
  9. ALBUTEROL. [Concomitant]
     Active Substance: ALBUTEROL
  10. LORATADINE. [Concomitant]
     Active Substance: LORATADINE
  11. PREDNISONE. [Concomitant]
     Active Substance: PREDNISONE
  12. SERTRALINE [Concomitant]
     Active Substance: SERTRALINE HYDROCHLORIDE
  13. FLUNISOLIDE. [Concomitant]
     Active Substance: FLUNISOLIDE
  14. PROVENTIL [Concomitant]
     Active Substance: ALBUTEROL
  15. ASPIRIN. [Concomitant]
     Active Substance: ASPIRIN
  16. LISINOPRIL. [Concomitant]
     Active Substance: LISINOPRIL

REACTIONS (9)
  - Asthma [Recovered/Resolved]
  - Drug ineffective [Unknown]
  - Cough [Recovered/Resolved]
  - Nasal congestion [Not Recovered/Not Resolved]
  - Throat irritation [Recovered/Resolved]
  - Dysphonia [Recovering/Resolving]
  - Inhalation therapy [Recovered/Resolved]
  - Cataract [Unknown]
  - Multiple allergies [Unknown]

NARRATIVE: CASE EVENT DATE: 201408
